FAERS Safety Report 11300876 (Version 1)
Quarter: 2015Q2

REPORT INFORMATION
  Report Type: Spontaneous
  Country: US (occurrence: None)
  Receive Date: 20150625
  Receipt Date: 20150625
  Transmission Date: 20150821
  Serious: No
  Sender: FDA-Public Use
  Company Number: A-NJ2014-105307

PATIENT
  Age: 74 Year
  Sex: Male

DRUGS (2)
  1. OPSUMIT [Suspect]
     Active Substance: MACITENTAN
     Indication: PULMONARY ARTERIAL HYPERTENSION
     Route: 048
     Dates: start: 201311
  2. OXYGEN (OXYGEN) [Concomitant]
     Active Substance: OXYGEN

REACTIONS (6)
  - Dyspnoea exertional [None]
  - Nasopharyngitis [None]
  - Nasal congestion [None]
  - Dyspnoea [None]
  - Condition aggravated [None]
  - Oxygen saturation decreased [None]

NARRATIVE: CASE EVENT DATE: 2013
